FAERS Safety Report 8222355-2 (Version None)
Quarter: 2012Q1

REPORT INFORMATION
  Report Type: 
  Country: None (occurrence: None)
  Receive Date: 20120313
  Receipt Date: 20120301
  Transmission Date: 20120608
  Serious: Yes (Hospitalization)
  Sender: FDA-Public Use
  Company Number: 2012SP011437

PATIENT
  Age: 7 Year
  Sex: Male

DRUGS (2)
  1. REBETOL [Suspect]
     Indication: HEPATITIS C
  2. PEG-INTRON [Suspect]
     Indication: HEPATITIS C
     Dosage: 50 MCG;ONCE;SC
     Route: 058
     Dates: start: 20120229

REACTIONS (3)
  - DEVICE BREAKAGE [None]
  - FOREIGN BODY [None]
  - NEEDLE ISSUE [None]
